FAERS Safety Report 10220249 (Version 1)
Quarter: 2014Q2

REPORT INFORMATION
  Report Type: Spontaneous
  Country: ZA (occurrence: ZA)
  Receive Date: 20140606
  Receipt Date: 20140606
  Transmission Date: 20141212
  Serious: Yes (Other)
  Sender: FDA-Public Use
  Company Number: ZA-ROCHE-1413500

PATIENT
  Age: 74 Year
  Sex: Male

DRUGS (1)
  1. RIVOTRIL [Suspect]
     Indication: PRODUCT USED FOR UNKNOWN INDICATION
     Route: 065

REACTIONS (8)
  - Chest discomfort [Unknown]
  - Chest pain [Unknown]
  - Dependence [Unknown]
  - Feeling abnormal [Unknown]
  - Anxiety [Unknown]
  - Anger [Unknown]
  - Aggression [Unknown]
  - Depression [Unknown]
